FAERS Safety Report 6093083-7 (Version None)
Quarter: 2009Q1

REPORT INFORMATION
  Report Type: 
  Country: None (occurrence: None)
  Receive Date: 20090224
  Receipt Date: 20090224
  Transmission Date: 20090719
  Serious: No
  Sender: FDA-Public Use
  Company Number: None

PATIENT
  Sex: Female
  Weight: 69.4911 kg

DRUGS (7)
  1. METFORMIN HCL [Suspect]
     Indication: GLUCOSE TOLERANCE IMPAIRED
     Dosage: 500MG 1 DAILY
     Dates: start: 20080208, end: 20090212
  2. PRAVASTATIN [Suspect]
     Indication: BLOOD CHOLESTEROL INCREASED
     Dosage: 40 MG. 1 DAILY
     Dates: end: 20081001
  3. PRAVASTATIN [Suspect]
     Indication: DEPRESSION
     Dosage: 40 MG. 1 DAILY
     Dates: end: 20081001
  4. PRAVASTATIN [Suspect]
     Indication: STRESS
     Dosage: 40 MG. 1 DAILY
     Dates: end: 20081001
  5. FLUOXETINE [Suspect]
     Indication: BLOOD CHOLESTEROL INCREASED
     Dosage: 20 MG. 1 DAILY
     Dates: end: 20081001
  6. FLUOXETINE [Suspect]
     Indication: DEPRESSION
     Dosage: 20 MG. 1 DAILY
     Dates: end: 20081001
  7. FLUOXETINE [Suspect]
     Indication: STRESS
     Dosage: 20 MG. 1 DAILY
     Dates: end: 20081001

REACTIONS (26)
  - ABNORMAL BEHAVIOUR [None]
  - AGITATION [None]
  - ALOPECIA [None]
  - AMNESIA [None]
  - ANXIETY [None]
  - BALANCE DISORDER [None]
  - CONFUSIONAL STATE [None]
  - DEPRESSION [None]
  - DYSPEPSIA [None]
  - DYSPNOEA [None]
  - FATIGUE [None]
  - FLATULENCE [None]
  - HEADACHE [None]
  - HYPERSOMNIA [None]
  - HYPOVITAMINOSIS [None]
  - IRRITABILITY [None]
  - MOOD ALTERED [None]
  - MUSCULOSKELETAL STIFFNESS [None]
  - MYALGIA [None]
  - PERSONALITY DISORDER [None]
  - PRURITUS [None]
  - PYREXIA [None]
  - SOMNOLENCE [None]
  - UNEVALUABLE EVENT [None]
  - WEIGHT DECREASED [None]
  - WEIGHT INCREASED [None]
